FAERS Safety Report 24356272 (Version 1)
Quarter: 2024Q3

REPORT INFORMATION
  Report Type: Spontaneous
  Country: IN (occurrence: IN)
  Receive Date: 20240924
  Receipt Date: 20240924
  Transmission Date: 20241016
  Serious: Yes (Other)
  Sender: RANBAXY
  Company Number: IN-SUN PHARMACEUTICAL INDUSTRIES LTD-2024R1-469261

PATIENT
  Age: 74 Year
  Sex: Female

DRUGS (6)
  1. FUROSEMIDE [Suspect]
     Active Substance: FUROSEMIDE
     Indication: Chronic kidney disease
     Dosage: 10 MILLIGRAM (8 HOURLY)
     Route: 042
  2. NOREPINEPHRINE [Suspect]
     Active Substance: NOREPINEPHRINE\NOREPINEPHRINE BITARTRATE
     Indication: Chronic kidney disease
     Route: 042
  3. PAMIDRONATE [Suspect]
     Active Substance: PAMIDRONATE DISODIUM
     Indication: Chronic kidney disease
     Dosage: 90 MILLIGRAM, QD
     Route: 042
  4. SODIUM CHLORIDE [Suspect]
     Active Substance: SODIUM CHLORIDE
     Indication: Chronic kidney disease
     Route: 065
  5. CALCITONIN [Suspect]
     Active Substance: CALCITONIN
     Indication: Chronic kidney disease
     Dosage: 200 UNITS (12 HOURLY)
     Route: 058
  6. ATROPINE [Suspect]
     Active Substance: ATROPINE
     Indication: Chronic kidney disease
     Dosage: 0.6 MILLIGRAM
     Route: 042

REACTIONS (2)
  - Cardiomyopathy [Recovering/Resolving]
  - Hypercalcaemia [Recovering/Resolving]
